FAERS Safety Report 21110819 (Version 3)
Quarter: 2022Q3

REPORT INFORMATION
  Report Type: Spontaneous
  Country: FR (occurrence: FR)
  Receive Date: 20220721
  Receipt Date: 20220920
  Transmission Date: 20221026
  Serious: Yes (Life-Threatening, Other)
  Sender: FDA-Public Use
  Company Number: None

PATIENT
  Age: 63 Year
  Sex: Male
  Weight: 68 kg

DRUGS (16)
  1. ZOPICLONE [Interacting]
     Active Substance: ZOPICLONE
     Indication: Insomnia
     Dosage: 7.5 MILLIGRAM, QD
     Route: 048
     Dates: start: 20211224, end: 20220314
  2. CLOZAPINE [Interacting]
     Active Substance: CLOZAPINE
     Indication: Schizophrenia
     Dosage: 200 MILLIGRAM, QD
     Route: 048
     Dates: start: 20211230, end: 20220314
  3. MIANSERIN [Interacting]
     Active Substance: MIANSERIN
     Indication: Depression
     Dosage: 24 MILLIGRAM, QD
     Route: 048
     Dates: start: 20211224, end: 20220314
  4. LOXAPINE [Interacting]
     Active Substance: LOXAPINE
     Indication: Schizophrenia
     Dosage: 75 MILLIGRAM, QD
     Route: 048
     Dates: start: 20211230, end: 20220224
  5. LOXAPINE [Interacting]
     Active Substance: LOXAPINE
     Dosage: 75 MILLIGRAM, QD
     Route: 048
     Dates: start: 20220307, end: 20220310
  6. LOXAPINE [Interacting]
     Active Substance: LOXAPINE
     Dosage: 25 MILLIGRAM, QD
     Route: 048
     Dates: start: 20220310, end: 20220314
  7. LOXAPINE [Interacting]
     Active Substance: LOXAPINE
     Dosage: 125 MILLIGRAM, QD
     Route: 048
     Dates: start: 20220224, end: 20220307
  8. SCOPOLAMINE [Interacting]
     Active Substance: SCOPOLAMINE
     Indication: Salivary hypersecretion
     Dosage: 2 DOSAGE FORM,Q3D(72 HOURS)
     Route: 003
     Dates: start: 20220313, end: 20220314
  9. SCOPOLAMINE [Interacting]
     Active Substance: SCOPOLAMINE
     Dosage: 1 DOSAGE FORM, Q3D(72 HOURS,INITIATED-16-MAR-22)
     Route: 003
     Dates: start: 20220316, end: 20220321
  10. SCOPOLAMINE [Interacting]
     Active Substance: SCOPOLAMINE
     Dosage: 1 DOSAGE FORM, Q3D (72 HOURS)
     Route: 003
     Dates: start: 20220304, end: 20220311
  11. VALPROATE SODIUM [Suspect]
     Active Substance: VALPROATE SODIUM
     Indication: Schizophrenia
     Dosage: 4 DOSAGE FORM, QD
     Route: 048
     Dates: start: 20211224, end: 20220314
  12. TROPATEPINE HYDROCHLORIDE [Suspect]
     Active Substance: TROPATEPINE HYDROCHLORIDE
     Indication: Extrapyramidal disorder
     Dosage: 20 MILLIGRAM, QD
     Route: 048
     Dates: start: 20211224, end: 20220314
  13. VALIUM [Interacting]
     Active Substance: DIAZEPAM
     Indication: Schizophrenia
     Dosage: 30 MILLIGRAM, QD
     Route: 048
     Dates: start: 20220223
  14. MACROGOLI STEARAS [Concomitant]
     Indication: Product used for unknown indication
     Dosage: 4 DOSAGE FORM, QD
     Route: 048
     Dates: start: 20211224
  15. X prep [Concomitant]
     Indication: Constipation
     Dosage: 2 DOSAGE FORM, Q3D (72 HOURS)
     Route: 048
     Dates: start: 20220306, end: 20220321
  16. X prep [Concomitant]
     Dosage: 2 DOSAGE FORM, Q3D (72 HOURS)
     Route: 048
     Dates: start: 20220318, end: 20220321

REACTIONS (3)
  - Drug interaction [Recovered/Resolved]
  - Intestinal obstruction [Recovered/Resolved]
  - Incorrect dose administered [Unknown]

NARRATIVE: CASE EVENT DATE: 20220314
